FAERS Safety Report 5194147-2 (Version None)
Quarter: 2006Q4

REPORT INFORMATION
  Report Type: 
  Country: None (occurrence: None)
  Receive Date: 20061228
  Receipt Date: 20061221
  Transmission Date: 20070319
  Serious: Yes (Hospitalization)
  Sender: FDA-Public Use
  Company Number: DE-SANOFI-SYNTHELABO-F04200600245

PATIENT
  Sex: Male

DRUGS (15)
  1. METOCLOPRAMIDE [Concomitant]
     Indication: DRUG USE FOR UNKNOWN INDICATION
     Route: 048
     Dates: start: 20061009
  2. IMODIUM [Concomitant]
     Indication: DRUG USE FOR UNKNOWN INDICATION
     Dosage: UNK
     Route: 065
  3. TEGRETOL [Concomitant]
     Indication: DRUG USE FOR UNKNOWN INDICATION
     Route: 048
  4. FOLINIC ACID [Suspect]
     Indication: COLORECTAL CANCER
     Dosage: UNK
     Route: 042
     Dates: start: 20061204, end: 20061204
  5. FLUOROURACIL [Suspect]
     Indication: COLORECTAL CANCER
     Dosage: UNK
     Route: 041
     Dates: start: 20061204, end: 20061204
  6. ELOXATIN [Suspect]
     Indication: COLORECTAL CANCER
     Route: 041
     Dates: start: 20061204, end: 20061204
  7. HEPARIN NATRIUM 5000 RATIO [Concomitant]
     Indication: DRUG USE FOR UNKNOWN INDICATION
     Dosage: UNK
     Route: 065
     Dates: start: 20061206
  8. METAMIZOL [Concomitant]
     Indication: DRUG USE FOR UNKNOWN INDICATION
     Route: 048
     Dates: start: 20061206
  9. TRAMADOL HCL [Concomitant]
     Indication: DRUG USE FOR UNKNOWN INDICATION
     Route: 048
     Dates: start: 20061206
  10. HALOPERIDOL [Concomitant]
     Indication: DRUG USE FOR UNKNOWN INDICATION
     Dosage: 5-0-10 GTT
     Route: 048
     Dates: start: 20061206
  11. CELLONDAN [Concomitant]
     Indication: DRUG USE FOR UNKNOWN INDICATION
     Route: 065
     Dates: start: 20061120
  12. DEXAMETHASONE [Concomitant]
     Indication: DRUG USE FOR UNKNOWN INDICATION
     Dosage: UNK
     Route: 065
     Dates: start: 20061106
  13. EMEND [Concomitant]
     Indication: DRUG USE FOR UNKNOWN INDICATION
     Dosage: 125-80-80 MG
     Route: 065
     Dates: start: 20061106
  14. ZOFRAN ZYDIS [Concomitant]
     Indication: DRUG USE FOR UNKNOWN INDICATION
     Dosage: 24 MG
     Route: 065
     Dates: start: 20061106
  15. LOPERAMID 1A PHARMA [Concomitant]
     Indication: DRUG USE FOR UNKNOWN INDICATION
     Dosage: UNK
     Route: 065
     Dates: start: 20061009

REACTIONS (3)
  - CIRCULATORY COLLAPSE [None]
  - CONVULSION [None]
  - LOSS OF CONSCIOUSNESS [None]
